FAERS Safety Report 20789580 (Version 6)
Quarter: 2022Q3

REPORT INFORMATION
  Report Type: Report from Study
  Country: NL (occurrence: NL)
  Receive Date: 20220505
  Receipt Date: 20220927
  Transmission Date: 20221026
  Serious: Yes (Hospitalization, Other)
  Sender: FDA-Public Use
  Company Number: NL-PPDUS-2022ALB000094

PATIENT
  Age: 4 Year
  Sex: Female
  Weight: 11.6 kg

DRUGS (2)
  1. ODEVIXIBAT [Suspect]
     Active Substance: ODEVIXIBAT
     Indication: Alagille syndrome
     Route: 048
     Dates: start: 20220110, end: 20220629
  2. RIFAMPIN [Concomitant]
     Active Substance: RIFAMPIN
     Indication: Pruritus
     Route: 048
     Dates: start: 20210721

REACTIONS (2)
  - Haematemesis [Recovered/Resolved]
  - International normalised ratio increased [Recovered/Resolved]

NARRATIVE: CASE EVENT DATE: 20220421
